FAERS Safety Report 8987145 (Version 2)
Quarter: 2013Q4

REPORT INFORMATION
  Report Type: Spontaneous
  Country: US (occurrence: US)
  Receive Date: 20121227
  Receipt Date: 20131015
  Transmission Date: 20140711
  Serious: Yes (Hospitalization, Disabling, Other)
  Sender: FDA-Public Use
  Company Number: US-BAYER-2012-135279

PATIENT
  Age: 23 Year
  Sex: Female
  Weight: 97.51 kg

DRUGS (6)
  1. YAZ [Suspect]
     Dosage: UNK
     Dates: start: 200711, end: 2009
  2. YASMIN [Suspect]
  3. OCELLA [Suspect]
  4. OMEPRAZOLE [Concomitant]
  5. ONDANSETRON [Concomitant]
  6. SULFAMETHOXAZOLE [Concomitant]

REACTIONS (7)
  - Gallbladder disorder [None]
  - Pain [None]
  - Injury [None]
  - Deformity [None]
  - Anxiety [None]
  - Anhedonia [None]
  - Cholecystitis chronic [None]
